FAERS Safety Report 20025115 (Version 1)
Quarter: 2021Q4

REPORT INFORMATION
  Report Type: Report from Study
  Country: US (occurrence: US)
  Receive Date: 20211102
  Receipt Date: 20211102
  Transmission Date: 20220303
  Serious: Yes (Other)
  Sender: FDA-Public Use
  Company Number: US-JAZZ-2020-US-011229

PATIENT
  Sex: Male

DRUGS (47)
  1. XYREM [Suspect]
     Active Substance: SODIUM OXYBATE
     Indication: Narcolepsy
     Dosage: 2.25 GRAM, BID
     Route: 048
     Dates: start: 200809, end: 200810
  2. XYREM [Suspect]
     Active Substance: SODIUM OXYBATE
     Indication: Cataplexy
     Dosage: 3 GRAM, BID
     Route: 048
     Dates: start: 200810, end: 200811
  3. XYREM [Suspect]
     Active Substance: SODIUM OXYBATE
     Dosage: 2.25 GRAM, BID
     Route: 048
     Dates: start: 200812, end: 200901
  4. XYREM [Suspect]
     Active Substance: SODIUM OXYBATE
     Dosage: 1.5 GRAM, BID
     Route: 048
     Dates: start: 201008, end: 201009
  5. XYREM [Suspect]
     Active Substance: SODIUM OXYBATE
     Dosage: DOSE ADJUSTMENT
     Route: 048
     Dates: start: 201009, end: 201101
  6. XYREM [Suspect]
     Active Substance: SODIUM OXYBATE
     Dosage: 4 GRAM, BID
     Route: 048
     Dates: start: 201101, end: 201103
  7. XYREM [Suspect]
     Active Substance: SODIUM OXYBATE
     Dosage: 2.25 GRAM, BID
     Route: 048
     Dates: start: 201809, end: 201809
  8. XYREM [Suspect]
     Active Substance: SODIUM OXYBATE
     Dosage: DOSE ADJUSTMENT
     Route: 048
     Dates: start: 201809, end: 201810
  9. XYREM [Suspect]
     Active Substance: SODIUM OXYBATE
     Dosage: 4.5 GRAM, BID
     Route: 048
     Dates: start: 201810, end: 201910
  10. NUVIGIL [Concomitant]
     Active Substance: ARMODAFINIL
  11. ASPIRIN [Concomitant]
     Active Substance: ASPIRIN
  12. ATENOLOL [Concomitant]
     Active Substance: ATENOLOL
  13. ATORVASTATIN [Concomitant]
     Active Substance: ATORVASTATIN
  14. BENADRYL ALLERGY [Concomitant]
     Active Substance: DIPHENHYDRAMINE HYDROCHLORIDE
  15. CHANTIX [Concomitant]
     Active Substance: VARENICLINE TARTRATE
  16. DOXYCYCLINE [Concomitant]
     Active Substance: DOXYCYCLINE
  17. DOXYCYCLINE HYCLATE [Concomitant]
     Active Substance: DOXYCYCLINE HYCLATE
  18. FENOFIBRATE [Concomitant]
     Active Substance: FENOFIBRATE
  19. FINASTERIDE [Concomitant]
     Active Substance: FINASTERIDE
  20. FLAXSEED [Concomitant]
     Active Substance: FLAX SEED
  21. FLONASE ALLERGY RELIEF [Concomitant]
     Active Substance: FLUTICASONE PROPIONATE
  22. FLUOXETINE HYDROCHLORIDE [Concomitant]
     Active Substance: FLUOXETINE HYDROCHLORIDE
  23. INVOKANA [Concomitant]
     Active Substance: CANAGLIFLOZIN
  24. LASIX [Concomitant]
     Active Substance: FUROSEMIDE
  25. LEVOTHYROXINE [Concomitant]
     Active Substance: LEVOTHYROXINE
  26. LORAZEPAM [Concomitant]
     Active Substance: LORAZEPAM
  27. MELOXICAM [Concomitant]
     Active Substance: MELOXICAM
  28. MIRAPEX [Concomitant]
     Active Substance: PRAMIPEXOLE DIHYDROCHLORIDE
  29. CALCIUM CARBONATE [Concomitant]
     Active Substance: CALCIUM CARBONATE
  30. NEILMED SINUS RINSE [Concomitant]
     Active Substance: SODIUM BICARBONATE\SODIUM CHLORIDE
  31. NEXIUM I.V. [Concomitant]
     Active Substance: ESOMEPRAZOLE SODIUM
  32. NOVOLIN NOS [Concomitant]
     Active Substance: INSULIN HUMAN
  33. NOVOLOG [Concomitant]
     Active Substance: INSULIN ASPART
  34. VICKS NYQUIL [Concomitant]
     Active Substance: ACETAMINOPHEN\DEXTROMETHORPHAN HYDROBROMIDE\DOXYLAMINE SUCCINATE
  35. OMEPRAZOLE [Concomitant]
     Active Substance: OMEPRAZOLE
  36. PROVIGIL [Concomitant]
     Active Substance: MODAFINIL
  37. ROZEREM [Concomitant]
     Active Substance: RAMELTEON
  38. TAMSULOSIN HYDROCHLORIDE [Concomitant]
     Active Substance: TAMSULOSIN HYDROCHLORIDE
  39. TAZTIA XT [Concomitant]
     Active Substance: DILTIAZEM HYDROCHLORIDE
  40. TRESIBA [Concomitant]
     Active Substance: INSULIN DEGLUDEC
  41. URSODIOL [Concomitant]
     Active Substance: URSODIOL
  42. VASCEPA [Concomitant]
     Active Substance: ICOSAPENT ETHYL
  43. VERAPAMIL [Concomitant]
     Active Substance: VERAPAMIL HYDROCHLORIDE
  44. VITAMIN B COMPLEX WITH C [Concomitant]
     Active Substance: ASCORBIC ACID\CALCIUM PANTOTHENATE\CYANOCOBALAMIN\NIACINAMIDE\PYRIDOXINE HYDROCHLORIDE\RIBOFLAVIN\TH
  45. VITAMIN D3 [Concomitant]
     Active Substance: CHOLECALCIFEROL
  46. ZOCOR [Concomitant]
     Active Substance: SIMVASTATIN
  47. ZOLPIDEM TARTRATE [Concomitant]
     Active Substance: ZOLPIDEM TARTRATE

REACTIONS (4)
  - Loss of consciousness [Unknown]
  - Dizziness [Unknown]
  - Urinary incontinence [Unknown]
  - Fall [Recovered/Resolved]
